FAERS Safety Report 13363742 (Version 1)
Quarter: 2017Q1

REPORT INFORMATION
  Report Type: Spontaneous
  Country: US (occurrence: US)
  Receive Date: 20170323
  Receipt Date: 20170323
  Transmission Date: 20170429
  Serious: No
  Sender: FDA-Public Use
  Company Number: US-ELI_LILLY_AND_COMPANY-US201608006344

PATIENT
  Sex: Male

DRUGS (1)
  1. CYMBALTA [Suspect]
     Active Substance: DULOXETINE HYDROCHLORIDE
     Indication: PRODUCT USED FOR UNKNOWN INDICATION
     Dosage: UNK, UNKNOWN
     Route: 048

REACTIONS (26)
  - Sinus tachycardia [Unknown]
  - Road traffic accident [Unknown]
  - Chromaturia [Unknown]
  - Affect lability [Unknown]
  - Fatigue [Unknown]
  - Vision blurred [Unknown]
  - Memory impairment [Unknown]
  - Blood pressure increased [Unknown]
  - Sensory disturbance [Unknown]
  - Back pain [Unknown]
  - Vertigo [Unknown]
  - Paraesthesia [Unknown]
  - Irritability [Unknown]
  - Dysphoria [Unknown]
  - Dizziness [Unknown]
  - Anxiety [Unknown]
  - Lethargy [Unknown]
  - Headache [Unknown]
  - Malaise [Unknown]
  - Weight increased [Unknown]
  - Agitation [Unknown]
  - Drug withdrawal syndrome [Unknown]
  - Nausea [Unknown]
  - Insomnia [Unknown]
  - Abnormal dreams [Unknown]
  - Decreased appetite [Unknown]
